FAERS Safety Report 8312991-7 (Version None)
Quarter: 2012Q2

REPORT INFORMATION
  Report Type: 
  Country: None (occurrence: None)
  Receive Date: 20120426
  Receipt Date: 20120419
  Transmission Date: 20120825
  Serious: Yes (Other)
  Sender: FDA-Public Use
  Company Number: US-BAYER-2011-123169

PATIENT
  Age: 35 Year
  Sex: Female
  Weight: 79.36 kg

DRUGS (3)
  1. DROSPIRENONE AND ETHINYL ESTRADIOL [Suspect]
     Dosage: UNK
     Dates: start: 20080922, end: 20090101
  2. YASMIN [Suspect]
     Dosage: UNK
     Dates: start: 20070914, end: 20080703
  3. YASMIN [Suspect]
     Dosage: UNK
     Dates: start: 20070917, end: 20080922

REACTIONS (4)
  - CHOLELITHIASIS [None]
  - ABDOMINAL PAIN [None]
  - INJURY [None]
  - PAIN [None]
